FAERS Safety Report 4590078-7 (Version None)
Quarter: 2005Q1

REPORT INFORMATION
  Report Type: 
  Country: None (occurrence: None)
  Receive Date: 20050217
  Receipt Date: 20050217
  Transmission Date: 20050727
  Serious: Yes (Other)
  Sender: FDA-Public Use
  Company Number: None

PATIENT
  Age: 85 Year
  Sex: Male
  Weight: 88.9 kg

DRUGS (12)
  1. TERAZOSIN HCL [Suspect]
  2. ZOLPIDEM TARTRATE [Concomitant]
  3. LORTADINE [Concomitant]
  4. RABEPRAZOLE SODIUM [Concomitant]
  5. DILTIAZEM (INWOOD) [Concomitant]
  6. HYDROCHLOROTHIAZIDE [Concomitant]
  7. SENNOSIDES [Concomitant]
  8. . [Concomitant]
  9. SIMVASTATIN [Concomitant]
  10. TRAIMCINOLONE ACETONIDE [Concomitant]
  11. HYPROMELLOSE [Concomitant]
  12. CLINDAMYCIN HCL [Concomitant]

REACTIONS (2)
  - DIZZINESS [None]
  - HEADACHE [None]
